FAERS Safety Report 7028774-4 (Version None)
Quarter: 2010Q4

REPORT INFORMATION
  Report Type: 
  Country: None (occurrence: None)
  Receive Date: 20101004
  Receipt Date: 20101004
  Transmission Date: 20110411
  Serious: Yes (Life-Threatening, Hospitalization)
  Sender: FDA-Public Use
  Company Number: None

PATIENT
  Age: 82 Year
  Sex: Male
  Weight: 78.4723 kg

DRUGS (1)
  1. METFORMIN HCL [Suspect]
     Indication: TYPE 2 DIABETES MELLITUS
     Dosage: ONE TABLET TWICE DAILY PO  (3 WEEKS PRIOR)
     Route: 048

REACTIONS (10)
  - AGGRESSION [None]
  - CONFUSIONAL STATE [None]
  - DIALYSIS [None]
  - DYSSTASIA [None]
  - INCOHERENT [None]
  - IRRITABILITY [None]
  - LETHARGY [None]
  - MENTAL STATUS CHANGES [None]
  - METABOLIC ACIDOSIS [None]
  - VOMITING [None]
